FAERS Safety Report 23497366 (Version 1)
Quarter: 2024Q1

REPORT INFORMATION
  Report Type: Spontaneous
  Country: US (occurrence: US)
  Receive Date: 20240208
  Receipt Date: 20240208
  Transmission Date: 20240409
  Serious: No
  Sender: FDA-Public Use
  Company Number: US-SA-SAC20240202000119

PATIENT
  Sex: Female

DRUGS (8)
  1. DUPIXENT [Suspect]
     Active Substance: DUPILUMAB
     Indication: Dermatitis atopic
     Dosage: 300 MG, QOW
     Route: 058
  2. TACROLIMUS [Concomitant]
     Active Substance: TACROLIMUS
  3. DOXYCYCLINE [Concomitant]
     Active Substance: DOXYCYCLINE
  4. OPZELURA [Concomitant]
     Active Substance: RUXOLITINIB PHOSPHATE
  5. IBRANCE [Concomitant]
     Active Substance: PALBOCICLIB
  6. LETROZOLE [Concomitant]
     Active Substance: LETROZOLE
  7. BETAMETHASONE [Concomitant]
     Active Substance: BETAMETHASONE\BETAMETHASONE DIPROPIONATE
  8. DESOXIMETASONE [Concomitant]
     Active Substance: DESOXIMETASONE

REACTIONS (1)
  - Skin exfoliation [Not Recovered/Not Resolved]
